FAERS Safety Report 8830065 (Version 1)
Quarter: 2012Q4

REPORT INFORMATION
  Report Type: 
  Country: US (occurrence: US)
  Receive Date: 20121008
  Receipt Date: 20121008
  Transmission Date: 20130627
  Serious: Yes (Hospitalization, Other)
  Sender: FDA-Public Use
  Company Number: US-PFIZER INC-2012246537

PATIENT
  Age: 55 Year
  Sex: Female
  Weight: 63.49 kg

DRUGS (2)
  1. RELPAX [Suspect]
     Indication: MIGRAINE
     Dosage: 40 mg, as needed
     Route: 048
     Dates: start: 2005, end: 201209
  2. IMITREX [Suspect]
     Indication: MIGRAINE
     Dosage: UNK
     Dates: start: 201011, end: 201011

REACTIONS (4)
  - Anxiety [Unknown]
  - Stress [Unknown]
  - Myocardial infarction [Unknown]
  - Drug ineffective [Unknown]
